APPROVED DRUG PRODUCT: BUPROPION HYDROCHLORIDE
Active Ingredient: BUPROPION HYDROCHLORIDE
Strength: 300MG
Dosage Form/Route: TABLET, EXTENDED RELEASE;ORAL
Application: A211200 | Product #001 | TE Code: AB3
Applicant: ZHEJIANG JUTAI PHARMACEUTICAL CO LTD
Approved: Sep 5, 2019 | RLD: No | RS: No | Type: RX